FAERS Safety Report 20632698 (Version 6)
Quarter: 2024Q1

REPORT INFORMATION
  Report Type: Spontaneous
  Country: JP (occurrence: JP)
  Receive Date: 20220324
  Receipt Date: 20240116
  Transmission Date: 20240410
  Serious: Yes (Other)
  Sender: FDA-Public Use
  Company Number: JP-MTPC-MTPC2022-0006974

PATIENT
  Age: 17 Year
  Sex: Male

DRUGS (9)
  1. REMICADE [Suspect]
     Active Substance: INFLIXIMAB
     Indication: Crohn^s disease
     Dosage: 200 MILLIGRAM, QD
     Route: 041
     Dates: start: 20180605
  2. REMICADE [Suspect]
     Active Substance: INFLIXIMAB
     Dosage: 300 MILLIGRAM, QD
     Route: 041
     Dates: start: 20180622
  3. REMICADE [Suspect]
     Active Substance: INFLIXIMAB
     Dosage: 400 MILLIGRAM, QD
     Route: 041
     Dates: start: 20210331
  4. REMICADE [Suspect]
     Active Substance: INFLIXIMAB
     Dosage: 400 MILLIGRAM, QD
     Route: 041
     Dates: start: 20210714, end: 20210714
  5. PENTASA [Suspect]
     Active Substance: MESALAMINE
     Indication: Crohn^s disease
     Dosage: 2-3G, QD
     Route: 048
     Dates: start: 20170406
  6. IMURAN [Suspect]
     Active Substance: AZATHIOPRINE
     Indication: Crohn^s disease
     Dosage: 50 MILLIGRAM, QD
     Route: 048
     Dates: start: 20180427, end: 20210724
  7. AMINO ACIDS\CARBOHYDRATES\MINERALS\SOYBEAN OIL\VITAMINS [Concomitant]
     Active Substance: AMINO ACIDS\CARBOHYDRATES\MINERALS\SOYBEAN OIL\VITAMINS
     Indication: Crohn^s disease
     Dosage: 80 GRAM, QD
     Route: 048
     Dates: start: 20170406
  8. PREDONINE [Concomitant]
     Active Substance: PREDNISOLONE
     Dosage: 10-30MG, QD
     Route: 065
     Dates: start: 20180427
  9. MIYA-BM [Concomitant]
     Active Substance: CLOSTRIDIUM BUTYRICUM SPORES STRAIN M-55
     Indication: Crohn^s disease
     Dosage: 1 DOSAGE FORM, TID
     Route: 048

REACTIONS (1)
  - Acute lymphocytic leukaemia [Recovering/Resolving]

NARRATIVE: CASE EVENT DATE: 20210724
